FAERS Safety Report 25797609 (Version 3)
Quarter: 2025Q4

REPORT INFORMATION
  Report Type: Spontaneous
  Country: EU (occurrence: None)
  Receive Date: 20250912
  Receipt Date: 20251121
  Transmission Date: 20260118
  Serious: Yes (Other)
  Sender: ORGANON
  Company Number: None

PATIENT
  Age: 16 Year
  Sex: Female
  Weight: 64 kg

DRUGS (3)
  1. MOMETASONE FUROATE [Suspect]
     Active Substance: MOMETASONE FUROATE
     Indication: Eczema
     Dosage: UNKNOWN (STRENGTH: 1 MG/G)
  2. TRIAMCINOLONE ACETONIDE [Suspect]
     Active Substance: TRIAMCINOLONE ACETONIDE
     Indication: Eczema
     Dosage: 3 TIMES PER WEEK, (STRENGTH: 1 MG/G)
     Dates: start: 20050301, end: 20240212
  3. HYDROCORTISONE BUTYRATE [Suspect]
     Active Substance: HYDROCORTISONE BUTYRATE
     Indication: Eczema
     Dosage: IN CASE OF COMPLAINTS (STRENGTH: 1 MG/G)

REACTIONS (3)
  - Topical steroid withdrawal reaction [Not Recovered/Not Resolved]
  - Eczema [Not Recovered/Not Resolved]
  - Mood swings [Not Recovered/Not Resolved]
